FAERS Safety Report 7157544-1 (Version None)
Quarter: 2010Q4

REPORT INFORMATION
  Report Type: 
  Country: None (occurrence: None)
  Receive Date: 20101214
  Receipt Date: 20100222
  Transmission Date: 20110411
  Serious: No
  Sender: FDA-Public Use
  Company Number: US-ASTRAZENECA-2010SE07707

PATIENT
  Age: 77 Year
  Sex: Female
  Weight: 49 kg

DRUGS (8)
  1. CRESTOR [Suspect]
     Indication: BLOOD CHOLESTEROL
     Route: 048
     Dates: start: 20070101
  2. ATENOLOL [Concomitant]
     Indication: BLOOD PRESSURE
  3. MULTAQ [Concomitant]
     Indication: HEART RATE IRREGULAR
  4. LAVOXAL [Concomitant]
     Indication: THYROID DISORDER
  5. EVISTA [Concomitant]
  6. ISOSORBIDEMN [Concomitant]
  7. JANGOVEN [Concomitant]
     Indication: ANTICOAGULANT THERAPY
     Dosage: 2 MG VARIES DAILY
  8. ADVICOR [Concomitant]
     Indication: BLOOD CHOLESTEROL
     Dosage: 1000/20 DAILY

REACTIONS (1)
  - PLATELET COUNT DECREASED [None]
